FAERS Safety Report 9250928 (Version 2)
Quarter: 2013Q3

REPORT INFORMATION
  Report Type: Spontaneous
  Country: US (occurrence: US)
  Receive Date: 20130424
  Receipt Date: 20130710
  Transmission Date: 20140515
  Serious: No
  Sender: FDA-Public Use
  Company Number: US-ASTRAZENECA-2013SE27189

PATIENT
  Age: 50 Year
  Sex: Male

DRUGS (16)
  1. NEXIUM [Suspect]
     Indication: GASTROOESOPHAGEAL REFLUX DISEASE
     Route: 048
     Dates: start: 1992, end: 2010
  2. NEXIUM [Suspect]
     Indication: GASTROOESOPHAGEAL REFLUX DISEASE
     Route: 048
     Dates: start: 20010801
  3. ZANTAC [Concomitant]
     Dates: start: 2008
  4. MYLANTA [Concomitant]
  5. GAVISCON [Concomitant]
  6. PEPCID [Concomitant]
  7. FISH OIL [Concomitant]
  8. MULTIVITAMIN [Concomitant]
  9. ASPIRIN [Concomitant]
  10. ALPRAZOLAM [Concomitant]
     Dates: start: 20100401
  11. DEXILANT [Concomitant]
     Route: 048
     Dates: start: 20100519
  12. METOCLOPRAMIDE [Concomitant]
     Route: 048
     Dates: start: 20100528
  13. PANTOPRAZOLE [Concomitant]
     Route: 048
     Dates: start: 20090120
  14. FOSAMAX [Concomitant]
     Route: 048
     Dates: start: 20010502
  15. CLARINEX [Concomitant]
     Route: 048
     Dates: start: 20020228
  16. BONIVA [Concomitant]
     Dates: start: 20080401

REACTIONS (7)
  - Osteoporosis [Unknown]
  - Bone density decreased [Unknown]
  - Bone disorder [Unknown]
  - Multiple fractures [Unknown]
  - Panic attack [Unknown]
  - Anxiety [Unknown]
  - Arthritis [Unknown]
